FAERS Safety Report 8170147-5 (Version None)
Quarter: 2012Q1

REPORT INFORMATION
  Report Type: 
  Country: None (occurrence: None)
  Receive Date: 20120228
  Receipt Date: 20120222
  Transmission Date: 20120608
  Serious: Yes (Death)
  Sender: FDA-Public Use
  Company Number: PHHY2012AR015484

PATIENT
  Sex: Male

DRUGS (1)
  1. EXELON [Suspect]
     Indication: MEMORY IMPAIRMENT
     Dosage: 4.6 MG/24 HOURS (1 PATCH DAILY)
     Route: 062
     Dates: end: 20110701

REACTIONS (2)
  - DEATH [None]
  - ABDOMINAL DISCOMFORT [None]
